FAERS Safety Report 18172799 (Version 1)
Quarter: 2020Q3

REPORT INFORMATION
  Report Type: Spontaneous
  Country: BA (occurrence: BA)
  Receive Date: 20200820
  Receipt Date: 20200820
  Transmission Date: 20201103
  Serious: Yes (Other)
  Sender: FDA-Public Use
  Company Number: BA-TEVA-2020-BA-1806782

PATIENT
  Age: 49 Year
  Sex: Female

DRUGS (1)
  1. CARBOPLASIN [Suspect]
     Active Substance: CARBOPLATIN
     Indication: OVARIAN CANCER
     Dosage: 450 MILLIGRAM DAILY;
     Route: 042
     Dates: start: 20200714, end: 20200714

REACTIONS (9)
  - Hypersensitivity [Recovered/Resolved]
  - Speech disorder [Recovered/Resolved]
  - Rash [Recovered/Resolved]
  - Tongue erythema [Recovered/Resolved]
  - Erythema [Recovered/Resolved]
  - Skin swelling [Recovered/Resolved]
  - Swelling face [Recovered/Resolved]
  - Swollen tongue [Recovered/Resolved]
  - Blood pressure increased [Recovered/Resolved]

NARRATIVE: CASE EVENT DATE: 20200714
